FAERS Safety Report 19487190 (Version 2)
Quarter: 2021Q3

REPORT INFORMATION
  Report Type: Spontaneous
  Country: TH (occurrence: TH)
  Receive Date: 20210702
  Receipt Date: 20210706
  Transmission Date: 20211014
  Serious: Yes (Death, Other)
  Sender: FDA-Public Use
  Company Number: NVSC2021TH139565

PATIENT
  Age: 39 Year
  Sex: Female

DRUGS (15)
  1. AC [Suspect]
     Active Substance: DOXORUBICIN
     Indication: METASTASES TO LUNG
  2. TAMOXIFEN [Suspect]
     Active Substance: TAMOXIFEN
     Indication: METASTASES TO LUNG
  3. DOCETAXEL. [Suspect]
     Active Substance: DOCETAXEL
     Indication: METASTASES TO CENTRAL NERVOUS SYSTEM
  4. AC [Suspect]
     Active Substance: DOXORUBICIN
     Indication: METASTASES TO CENTRAL NERVOUS SYSTEM
  5. TAMOXIFEN [Suspect]
     Active Substance: TAMOXIFEN
     Indication: METASTASES TO BONE
  6. DOCETAXEL. [Suspect]
     Active Substance: DOCETAXEL
     Indication: METASTASES TO LUNG
  7. AC [Suspect]
     Active Substance: DOXORUBICIN
     Indication: METASTASES TO LIVER
  8. TAMOXIFEN [Suspect]
     Active Substance: TAMOXIFEN
     Indication: METASTASES TO CENTRAL NERVOUS SYSTEM
  9. TAMOXIFEN [Suspect]
     Active Substance: TAMOXIFEN
     Indication: METASTASES TO LIVER
  10. DOCETAXEL. [Suspect]
     Active Substance: DOCETAXEL
     Indication: BREAST CANCER METASTATIC
     Dosage: CYCLIC (4 CYCLES)
     Route: 065
  11. DOCETAXEL. [Suspect]
     Active Substance: DOCETAXEL
     Indication: METASTASES TO BONE
  12. DOCETAXEL. [Suspect]
     Active Substance: DOCETAXEL
     Indication: METASTASES TO LIVER
  13. AC [Suspect]
     Active Substance: DOXORUBICIN
     Indication: BREAST CANCER METASTATIC
     Dosage: CYCLIC (4 CYCLES)
     Route: 065
  14. TAMOXIFEN [Suspect]
     Active Substance: TAMOXIFEN
     Indication: BREAST CANCER METASTATIC
     Dosage: UNK
     Route: 065
  15. AC [Suspect]
     Active Substance: DOXORUBICIN
     Indication: METASTASES TO BONE

REACTIONS (7)
  - Metastases to lymph nodes [Unknown]
  - Back pain [Unknown]
  - Metastases to bone [Unknown]
  - Death [Fatal]
  - Breast cancer recurrent [Unknown]
  - Malignant pleural effusion [Unknown]
  - Nodule [Unknown]

NARRATIVE: CASE EVENT DATE: 2018
